FAERS Safety Report 17426200 (Version 1)
Quarter: 2020Q1

REPORT INFORMATION
  Report Type: Spontaneous
  Country: DE (occurrence: DE)
  Receive Date: 20200217
  Receipt Date: 20200217
  Transmission Date: 20200409
  Serious: Yes (Life-Threatening, Hospitalization)
  Sender: FDA-Public Use
  Company Number: DE-HORIZON-PRO-0045-2020

PATIENT
  Age: 21 Year
  Sex: Female

DRUGS (1)
  1. CYSTEAMINE BITARTRATE [Suspect]
     Active Substance: CYSTEAMINE BITARTRATE
     Indication: CYSTINOSIS
     Dosage: 3G/DAY

REACTIONS (2)
  - Posterior reversible encephalopathy syndrome [Recovered/Resolved with Sequelae]
  - Overdose [Unknown]
